FAERS Safety Report 6012296-3 (Version None)
Quarter: 2008Q4

REPORT INFORMATION
  Report Type: 
  Country: None (occurrence: None)
  Receive Date: 20081218
  Receipt Date: 20081104
  Transmission Date: 20090506
  Serious: No
  Sender: FDA-Public Use
  Company Number: US-ASTRAZENECA-2008UW24670

PATIENT
  Age: 35 Year
  Sex: Female
  Weight: 61.2 kg

DRUGS (4)
  1. SYMBICORT [Suspect]
     Indication: ASTHMA
     Dosage: 160/4.5 MCG, 2 PUFFS TWICE DAILY
     Route: 055
     Dates: end: 20081028
  2. SYMBICORT [Suspect]
     Dosage: 160/4.5 MCG, 2 PUFFS TWICE DAILY
     Route: 055
     Dates: start: 20081104
  3. KLONOPIN [Concomitant]
  4. EFFEXOR [Concomitant]

REACTIONS (2)
  - ARTHRALGIA [None]
  - FATIGUE [None]
